FAERS Safety Report 6654106-7 (Version None)
Quarter: 2010Q1

REPORT INFORMATION
  Report Type: 
  Country: None (occurrence: None)
  Receive Date: 20100326
  Receipt Date: 20100323
  Transmission Date: 20100710
  Serious: Yes (Death, Other)
  Sender: FDA-Public Use
  Company Number: PHEH2010US02592

PATIENT
  Sex: Male
  Weight: 107.72 kg

DRUGS (15)
  1. EXJADE [Suspect]
     Indication: IRON OVERLOAD
     Dosage: 2000 MG, QD
     Route: 048
     Dates: start: 20080605
  2. EXJADE [Suspect]
     Indication: LYMPHATIC DISORDER
  3. EXJADE [Suspect]
     Indication: BLOOD DISORDER
  4. DECITABINE [Concomitant]
     Indication: MYELODYSPLASTIC SYNDROME
     Dosage: 40MG DAY 1THRU 5 Q28 DAYS
     Route: 042
     Dates: start: 20090427, end: 20090724
  5. REVLIMID [Concomitant]
     Indication: MYELODYSPLASTIC SYNDROME
     Dosage: 10 MG, QD
     Route: 048
     Dates: start: 20080317
  6. SIMVASTATIN [Concomitant]
     Dosage: 80 MG 1/2 DAILY
  7. LABETALOL HCL [Concomitant]
     Dosage: 200MG, 1/2 BID
  8. NITROGLYCERIN [Concomitant]
     Dosage: UNK
     Route: 060
  9. DIOVAN [Concomitant]
     Dosage: 320 MG, QD
  10. PROBENECID [Concomitant]
     Dosage: 500 MG, QD
  11. FUROSEMIDE [Concomitant]
     Dosage: 80MG ALTERNATING WITH 40MG
     Route: 048
  12. HYDROCODONE BITARTRATE AND ACETAMINOPHEN [Concomitant]
     Dosage: 5/500 Q4H PRN
  13. ALLOPURINOL [Concomitant]
     Dosage: 300 MG, QD
     Route: 048
  14. COMPAZINE [Concomitant]
     Dosage: 10 MG, PRN
     Route: 048
  15. RED BLOOD CELLS [Concomitant]

REACTIONS (4)
  - DEATH [None]
  - HAEMATOCRIT DECREASED [None]
  - HAEMOGLOBIN DECREASED [None]
  - PLATELET COUNT DECREASED [None]
